FAERS Safety Report 15501047 (Version 1)
Quarter: 2018Q4

REPORT INFORMATION
  Report Type: Spontaneous
  Country: IL (occurrence: IL)
  Receive Date: 20181015
  Receipt Date: 20181015
  Transmission Date: 20190205
  Serious: Yes (Death, Hospitalization)
  Sender: FDA-Public Use
  Company Number: IL-JNJFOC-20181019747

PATIENT
  Age: 88 Year
  Sex: Male

DRUGS (1)
  1. XARELTO [Suspect]
     Active Substance: RIVAROXABAN
     Indication: ATRIAL FIBRILLATION
     Route: 048
     Dates: end: 2018

REACTIONS (10)
  - Multiple organ dysfunction syndrome [Fatal]
  - Lower limb fracture [Unknown]
  - Subcutaneous haematoma [Unknown]
  - Haematoma [Unknown]
  - Loss of consciousness [Unknown]
  - Rib fracture [Unknown]
  - Head injury [Unknown]
  - Skin injury [Unknown]
  - Thoracic cavity drainage [Unknown]
  - Haemoglobin decreased [Unknown]

NARRATIVE: CASE EVENT DATE: 2018
